FAERS Safety Report 22058961 (Version 1)
Quarter: 2023Q1

REPORT INFORMATION
  Report Type: Spontaneous
  Country: US (occurrence: US)
  Receive Date: 20230303
  Receipt Date: 20230303
  Transmission Date: 20230417
  Serious: Yes (Other)
  Sender: FDA-Public Use
  Company Number: US-MYLANLABS-2023M1022130

PATIENT
  Age: 61 Year
  Sex: Male

DRUGS (10)
  1. DOXORUBICIN [Suspect]
     Active Substance: DOXORUBICIN
     Indication: Diffuse large B-cell lymphoma
     Dosage: UNK, CYCLE (ALONG WITH RITUXIMAB, CYCLOPHOSPHAMIDE, VINCRISTINE, PREDNISONE)
     Route: 065
  2. PREDNISONE [Suspect]
     Active Substance: PREDNISONE
     Indication: Diffuse large B-cell lymphoma
     Dosage: UNK, CYCLE ( ALONG WITH RITUXIMAB, CYCLOPHOSPHAMIDE, DOXORUBICIN, VINCRISTINE)
     Route: 065
  3. LENALIDOMIDE [Suspect]
     Active Substance: LENALIDOMIDE
     Indication: Diffuse large B-cell lymphoma
     Dosage: 20 MILLIGRAM, CYCLE (ADMINISTERED ON DAY 1-21, EVERY 28 DAYS)
     Route: 048
  4. LENALIDOMIDE [Suspect]
     Active Substance: LENALIDOMIDE
     Dosage: 15 MILLIGRAM, CYCLE (REDUCED WITH CYCLE 3. ADMINISTERED ON DAY 1-21, EVERY 28 DAYS)
     Route: 048
  5. LENALIDOMIDE [Suspect]
     Active Substance: LENALIDOMIDE
     Dosage: 10 MILLIGRAM, 28D CYCLE (REDUCED WITH CYCLE 5 DUE TO RASH. ADMINISTERED ON DAY 1-21, EVERY 28 DAYS)
     Route: 048
  6. RITUXIMAB [Suspect]
     Active Substance: RITUXIMAB
     Indication: Diffuse large B-cell lymphoma
     Dosage: UNK (ALONG WITH CYCLOPHOSPHAMIDE, DOXORUBICIN, VINCRISTINE, PREDNISONE. 6 CYCLES COMPLETED)
     Route: 065
  7. RITUXIMAB [Suspect]
     Active Substance: RITUXIMAB
     Indication: Diffuse large B-cell lymphoma
     Dosage: 375 MILLIGRAM/SQ. METER, 28D CYCLE (ADMINISTERED EVERY 28 DAYS. 6 CYCLES COMPLETE)
     Route: 042
  8. CYCLOPHOSPHAMIDE [Suspect]
     Active Substance: CYCLOPHOSPHAMIDE
     Indication: Diffuse large B-cell lymphoma
     Dosage: UNK UNK, CYCLE (ALONG WITH RITUXIMAB, DOXORUBICIN, VINCRISTINE, PREDNISONE)
     Route: 065
  9. VINCRISTINE [Suspect]
     Active Substance: VINCRISTINE
     Indication: Diffuse large B-cell lymphoma
     Dosage: UNK UNK, CYCLE (ALONG WITH RITUXIMAB, CYCLOPHOSPHAMIDE, DOXORUBICIN, PREDNISONE)
     Route: 065
  10. IBRUTINIB [Concomitant]
     Active Substance: IBRUTINIB
     Indication: Diffuse large B-cell lymphoma
     Dosage: 560 MILLIGRAM, QD
     Route: 048

REACTIONS (2)
  - Cardiomyopathy [Unknown]
  - Rash [Recovering/Resolving]
